FAERS Safety Report 8088691-8 (Version None)
Quarter: 2012Q1

REPORT INFORMATION
  Report Type: 
  Country: None (occurrence: None)
  Receive Date: 20120128
  Receipt Date: 20110504
  Transmission Date: 20120608
  Serious: Yes (Other)
  Sender: FDA-Public Use
  Company Number: US-ABBOTT-11P-163-0718729-00

PATIENT
  Sex: Female
  Weight: 88.53 kg

DRUGS (13)
  1. CINNAMON [Concomitant]
     Indication: SUPPLEMENTATION THERAPY
  2. TORSIMIDE [Concomitant]
     Indication: PRODUCT USED FOR UNKNOWN INDICATION
  3. BIOTIN [Concomitant]
     Indication: PRODUCT USED FOR UNKNOWN INDICATION
  4. MULTIPLE VITAMINS [Concomitant]
     Indication: VITAMIN SUPPLEMENTATION
  5. ASACOL [Concomitant]
     Indication: PRODUCT USED FOR UNKNOWN INDICATION
  6. TOPROL-XL [Concomitant]
     Indication: PRODUCT USED FOR UNKNOWN INDICATION
  7. GARLIC [Concomitant]
     Indication: SUPPLEMENTATION THERAPY
  8. MILK THISTLE [Concomitant]
     Indication: SUPPLEMENTATION THERAPY
  9. HUMIRA [Suspect]
     Indication: CROHN'S DISEASE
     Dates: start: 20091212
  10. ZYRTEC [Concomitant]
     Indication: PRODUCT USED FOR UNKNOWN INDICATION
  11. ALOE VERA JUICE WITH CHOLOREA SLIVER [Concomitant]
     Indication: SUPPLEMENTATION THERAPY
     Dosage: JUICE
  12. ZEGRATEN [Concomitant]
     Indication: PRODUCT USED FOR UNKNOWN INDICATION
  13. VITAMIN B COMPLEX CAP [Concomitant]
     Indication: VITAMIN SUPPLEMENTATION

REACTIONS (6)
  - NASOPHARYNGITIS [None]
  - SPUTUM DISCOLOURED [None]
  - BRONCHIAL DISORDER [None]
  - PYREXIA [None]
  - INJECTION SITE ERYTHEMA [None]
  - KNEE ARTHROPLASTY [None]
